FAERS Safety Report 17585058 (Version 1)
Quarter: 2020Q1

REPORT INFORMATION
  Report Type: Spontaneous
  Country: US (occurrence: US)
  Receive Date: 20200326
  Receipt Date: 20200326
  Transmission Date: 20200409
  Serious: No
  Sender: FDA-Public Use
  Company Number: US-CURRAX PHARMACEUTICALS LLC-US-2020PER000020

PATIENT
  Age: 27 Year
  Sex: Female
  Weight: 52.15 kg

DRUGS (1)
  1. ONZETRA [Suspect]
     Active Substance: SUMATRIPTAN SUCCINATE
     Indication: SLEEP TERROR
     Dosage: 11 UNK, UNK
     Route: 045
     Dates: start: 20190112

REACTIONS (1)
  - Sleep terror [Unknown]
